FAERS Safety Report 7064910 (Version 2)
Quarter: 2015Q4

REPORT INFORMATION
  Report Type: Spontaneous
  Country: CA (occurrence: CA)
  Receive Date: 20090728
  Receipt Date: 20151204
  Transmission Date: 20160305
  Serious: Yes (Death, Hospitalization)
  Sender: FDA-Public Use
  Company Number: CA-JNJFOC-20090706238

PATIENT
  Age: 61 Year
  Sex: Male
  Weight: 69 kg

DRUGS (2)
  1. REMICADE [Suspect]
     Active Substance: INFLIXIMAB
     Indication: ANKYLOSING SPONDYLITIS
     Route: 042
     Dates: start: 20070328
  2. REMICADE [Suspect]
     Active Substance: INFLIXIMAB
     Indication: ANKYLOSING SPONDYLITIS
     Route: 042
     Dates: start: 20080208

REACTIONS (14)
  - Death [Fatal]
  - Chronic kidney disease [Unknown]
  - Hallucination, visual [Unknown]
  - Confusional state [Unknown]
  - Subdural haematoma [Unknown]
  - Acute respiratory failure [Unknown]
  - Clostridium difficile infection [Unknown]
  - Cardio-respiratory arrest [Unknown]
  - Renal amyloidosis [Unknown]
  - Infection [Unknown]
  - Loss of consciousness [Unknown]
  - Paranoia [Unknown]
  - Pneumonia aspiration [Unknown]
  - Agitation [Unknown]

NARRATIVE: CASE EVENT DATE: 2007
